FAERS Safety Report 14102629 (Version 1)
Quarter: 2017Q4

REPORT INFORMATION
  Report Type: Spontaneous
  Country: US (occurrence: US)
  Receive Date: 20171018
  Receipt Date: 20171018
  Transmission Date: 20180321
  Serious: No
  Sender: FDA-Public Use
  Company Number: US-ENDO PHARMACEUTICALS INC-2017-004710

PATIENT
  Sex: Female

DRUGS (1)
  1. VALSTAR [Suspect]
     Active Substance: VALRUBICIN
     Indication: BLADDER CANCER
     Dosage: 3200 MG, UNKNOWN
     Route: 043
     Dates: start: 20170818

REACTIONS (3)
  - Dose calculation error [Unknown]
  - Urinary incontinence [Unknown]
  - Overdose [Unknown]

NARRATIVE: CASE EVENT DATE: 20170818
